FAERS Safety Report 8517954-4 (Version None)
Quarter: 2012Q3

REPORT INFORMATION
  Report Type: 
  Country: None (occurrence: None)
  Receive Date: 20120718
  Receipt Date: 20120710
  Transmission Date: 20120928
  Serious: Yes (Other)
  Sender: FDA-Public Use
  Company Number: GE-CELGENEUS-225-C5013-11033116

PATIENT
  Sex: Male
  Weight: 55 kg

DRUGS (3)
  1. LENALIDOMIDE [Suspect]
     Indication: MULTIPLE MYELOMA
     Dosage: 7.5 MILLIGRAM
     Route: 048
     Dates: start: 20070220
  2. MELPHALAN HYDROCHLORIDE [Suspect]
     Indication: MULTIPLE MYELOMA
     Dosage: 8 MILLIGRAM
     Route: 065
     Dates: start: 20070220, end: 20071007
  3. PREDNISONE [Suspect]
     Indication: MULTIPLE MYELOMA
     Dosage: 114 MILLIGRAM
     Route: 065
     Dates: start: 20070220, end: 20071007

REACTIONS (1)
  - SQUAMOUS CELL CARCINOMA OF SKIN [None]
